FAERS Safety Report 25485101 (Version 1)
Quarter: 2025Q2

REPORT INFORMATION
  Report Type: Report from Study
  Country: IN (occurrence: IN)
  Receive Date: 20250626
  Receipt Date: 20250626
  Transmission Date: 20250716
  Serious: Yes (Other)
  Sender: DAIICHI
  Company Number: IN-AstraZeneca-CH-00893541A

PATIENT
  Age: 65 Year
  Sex: Male
  Weight: 49 kg

DRUGS (1)
  1. ENHERTU [Suspect]
     Active Substance: FAM-TRASTUZUMAB DERUXTECAN-NXKI
     Indication: Product used for unknown indication
     Dosage: 300 MG, ONCE EVERY 3 WK
     Route: 042

REACTIONS (12)
  - Tuberculosis [Unknown]
  - Weight increased [Unknown]
  - Asthenia [Unknown]
  - Decreased appetite [Unknown]
  - Ageusia [Unknown]
  - Peripheral swelling [Unknown]
  - Gait disturbance [Unknown]
  - Insomnia [Unknown]
  - Anxiety [Unknown]
  - Gastrooesophageal reflux disease [Unknown]
  - Pyrexia [Unknown]
  - Pain [Unknown]

NARRATIVE: CASE EVENT DATE: 20250618
